FAERS Safety Report 18704116 (Version 3)
Quarter: 2021Q1

REPORT INFORMATION
  Report Type: Spontaneous
  Country: IN (occurrence: IN)
  Receive Date: 20210105
  Receipt Date: 20210322
  Transmission Date: 20210419
  Serious: Yes (Other)
  Sender: FDA-Public Use
  Company Number: IN-PFIZER INC-2020414801

PATIENT
  Sex: Female

DRUGS (3)
  1. PALBACE [Suspect]
     Active Substance: PALBOCICLIB
     Dosage: 125 MG, 1X/DAY
     Route: 048
     Dates: start: 20200815
  2. PALBACE [Suspect]
     Active Substance: PALBOCICLIB
     Indication: BREAST CANCER METASTATIC
     Dosage: 125 MG, 1X/DAY
     Route: 048
     Dates: start: 20180926
  3. PALBACE [Suspect]
     Active Substance: PALBOCICLIB
     Dosage: 100 MG 1X/DAY
     Route: 048

REACTIONS (10)
  - Splenomegaly [Unknown]
  - Osteopenia [Unknown]
  - Weight decreased [Unknown]
  - Osteosclerosis [Unknown]
  - Lymphocyte count decreased [Unknown]
  - Blood thyroid stimulating hormone increased [Unknown]
  - Crystalluria [Unknown]
  - Platelet count decreased [Unknown]
  - Neoplasm progression [Unknown]
  - Haemoglobin decreased [Recovering/Resolving]

NARRATIVE: CASE EVENT DATE: 20200727
